FAERS Safety Report 7440612-4 (Version None)
Quarter: 2011Q2

REPORT INFORMATION
  Report Type: 
  Country: None (occurrence: None)
  Receive Date: 20110427
  Receipt Date: 20110420
  Transmission Date: 20111010
  Serious: Yes (Hospitalization)
  Sender: FDA-Public Use
  Company Number: B0715016A

PATIENT
  Age: 61 Year
  Sex: Female
  Weight: 55 kg

DRUGS (5)
  1. KYTRIL [Concomitant]
     Dosage: 3MG PER DAY
     Dates: start: 20050208, end: 20050209
  2. NEUTROGIN [Concomitant]
     Dates: start: 20050211, end: 20050221
  3. FUNGUARD [Concomitant]
     Dosage: 50MG PER DAY
     Route: 042
     Dates: start: 20050128, end: 20050310
  4. ALKERAN [Suspect]
     Indication: STEM CELL TRANSPLANT
     Dosage: 150MG PER DAY
     Route: 042
     Dates: start: 20050208, end: 20050209
  5. ZOVIRAX [Concomitant]
     Dosage: 250MG PER DAY
     Route: 048
     Dates: start: 20050126, end: 20050212

REACTIONS (1)
  - FEBRILE NEUTROPENIA [None]
